FAERS Safety Report 9508820 (Version 1)
Quarter: 2013Q3

REPORT INFORMATION
  Report Type: Spontaneous
  Country: US (occurrence: US)
  Receive Date: 20130909
  Receipt Date: 20130909
  Transmission Date: 20140515
  Serious: No
  Sender: FDA-Public Use
  Company Number: US-BRISTOL-MYERS SQUIBB COMPANY-17413220

PATIENT
  Sex: Female

DRUGS (1)
  1. ABILIFY TABS 2 MG [Suspect]
     Dosage: ONCE A NIGHT
     Dates: start: 2012, end: 20130205

REACTIONS (3)
  - Rash [Unknown]
  - Insomnia [Unknown]
  - Agitation [Unknown]
